FAERS Safety Report 20976270 (Version 2)
Quarter: 2022Q2

REPORT INFORMATION
  Report Type: Report from Study
  Country: BE (occurrence: BE)
  Receive Date: 20220617
  Receipt Date: 20220624
  Transmission Date: 20220721
  Serious: Yes (Hospitalization)
  Sender: FDA-Public Use
  Company Number: BE-JNJFOC-20220619227

PATIENT
  Sex: Male
  Weight: 63 kg

DRUGS (2)
  1. TREMFYA [Suspect]
     Active Substance: GUSELKUMAB
     Indication: Psoriasis
     Dosage: DATE OF LAST ADMINISTRATION PRIOR TO THE EVENT WAS ON 29-NOV-2021
     Route: 065
     Dates: start: 20190729
  2. TREMFYA [Suspect]
     Active Substance: GUSELKUMAB

REACTIONS (1)
  - Chronic respiratory disease [Recovered/Resolved]

NARRATIVE: CASE EVENT DATE: 20220325
